FAERS Safety Report 18280842 (Version 4)
Quarter: 2020Q4

REPORT INFORMATION
  Report Type: Spontaneous
  Country: US (occurrence: US)
  Receive Date: 20200917
  Receipt Date: 20201216
  Transmission Date: 20210113
  Serious: No
  Sender: FDA-Public Use
  Company Number: US-GILEAD-2020-0494716

PATIENT
  Age: 60 Year
  Sex: Male

DRUGS (2)
  1. SOFOSBUVIR;VELPATASVIR [Suspect]
     Active Substance: SOFOSBUVIR\VELPATASVIR
     Indication: CHRONIC HEPATITIS C
     Dosage: SOFOSBUVIR/VELPATASVIR 400MG-100MG   | TAKE 1 TABLET BY MOUTH ONCE DAILY
     Route: 048
     Dates: start: 20200821
  2. LISINOPRIL. [Concomitant]
     Active Substance: LISINOPRIL

REACTIONS (10)
  - Alcohol abuse [Recovered/Resolved]
  - Blood glucose decreased [Recovered/Resolved]
  - Musculoskeletal chest pain [Unknown]
  - Back pain [Recovered/Resolved with Sequelae]
  - Dizziness [Unknown]
  - Nausea [Recovered/Resolved with Sequelae]
  - Headache [Not Recovered/Not Resolved]
  - Fatigue [Recovered/Resolved with Sequelae]
  - Dyspepsia [Recovered/Resolved with Sequelae]
  - Vertigo [Not Recovered/Not Resolved]

NARRATIVE: CASE EVENT DATE: 202010
